FAERS Safety Report 4324291-0 (Version None)
Quarter: 2004Q1

REPORT INFORMATION
  Report Type: 
  Country: None (occurrence: None)
  Receive Date: 20040326
  Receipt Date: 20040122
  Transmission Date: 20041129
  Serious: No
  Sender: FDA-Public Use
  Company Number: US-GLAXOSMITHKLINE-A0494704A

PATIENT
  Sex: Female

DRUGS (3)
  1. ADVAIR DISKUS 100/50 [Suspect]
     Indication: ASTHMA
     Route: 055
     Dates: start: 20040121
  2. PREDNISONE [Concomitant]
     Dosage: 20MG UNKNOWN
     Route: 065
  3. BIAXIN [Concomitant]
     Route: 065

REACTIONS (1)
  - INSOMNIA [None]
